FAERS Safety Report 9600995 (Version 2)
Quarter: 2013Q4

REPORT INFORMATION
  Report Type: Spontaneous
  Country: US (occurrence: US)
  Receive Date: 20131004
  Receipt Date: 20131004
  Transmission Date: 20140711
  Serious: Yes (Other)
  Sender: FDA-Public Use
  Company Number: US-AMGEN-USASP2013035623

PATIENT
  Age: 53 Year
  Sex: Female

DRUGS (3)
  1. ENBREL [Suspect]
     Indication: PSORIATIC ARTHROPATHY
     Dosage: 50 MG, QWK
     Route: 058
     Dates: start: 20120213
  2. CLOBETASOL [Concomitant]
     Indication: PSORIASIS
     Dosage: UNK UNK, BID
     Route: 061
  3. METHOTREXATE [Concomitant]
     Indication: PSORIASIS
     Dosage: 12.5 MG, QWK
     Route: 048
     Dates: start: 201003, end: 20130109

REACTIONS (4)
  - Pneumonia [Recovered/Resolved]
  - Arthralgia [Not Recovered/Not Resolved]
  - Fall [Unknown]
  - Pain in extremity [Unknown]
